FAERS Safety Report 7215250-9 (Version None)
Quarter: 2011Q1

REPORT INFORMATION
  Report Type: 
  Country: None (occurrence: None)
  Receive Date: 20110107
  Receipt Date: 20101229
  Transmission Date: 20110831
  Serious: Yes (Other)
  Sender: FDA-Public Use
  Company Number: PHHY2010US88912

PATIENT
  Sex: Female

DRUGS (1)
  1. FEMARA [Suspect]
     Dosage: UNK

REACTIONS (4)
  - BLADDER CANCER [None]
  - BLADDER NEOPLASM SURGERY [None]
  - BREAST CANCER [None]
  - MASTECTOMY [None]
